FAERS Safety Report 21527807 (Version 1)
Quarter: 2022Q4

REPORT INFORMATION
  Report Type: Spontaneous
  Country: HR (occurrence: HR)
  Receive Date: 20221031
  Receipt Date: 20221031
  Transmission Date: 20230113
  Serious: Yes (Life-Threatening, Other)
  Sender: FDA-Public Use
  Company Number: HR-PFIZER INC-PV202200084835

PATIENT
  Age: 63 Year
  Sex: Female

DRUGS (2)
  1. CARBOPLATIN [Suspect]
     Active Substance: CARBOPLATIN
     Indication: Metastatic uterine cancer
     Dosage: UNK, CYCLIC (6 CYCLES)
     Dates: end: 202102
  2. PACLITAXEL [Suspect]
     Active Substance: PACLITAXEL
     Indication: Metastatic uterine cancer
     Dosage: UNK, CYCLIC (6 CYCLES)
     Dates: end: 202102

REACTIONS (1)
  - Vaginal haemorrhage [Unknown]
